FAERS Safety Report 15800948 (Version 2)
Quarter: 2019Q1

REPORT INFORMATION
  Report Type: Spontaneous
  Country: IT (occurrence: IT)
  Receive Date: 20190109
  Receipt Date: 20190320
  Transmission Date: 20190417
  Serious: Yes (Other)
  Sender: FDA-Public Use
  Company Number: IT-TEVA-2019-IT-995948

PATIENT
  Age: 58 Year
  Sex: Female

DRUGS (2)
  1. AMIKACINA TEVA [Suspect]
     Active Substance: AMIKACIN
     Indication: PNEUMONIA
     Dosage: 1 GRAM DAILY;
     Route: 065
     Dates: start: 201812
  2. CORTISONE [Concomitant]
     Active Substance: CORTISONE\HYDROCORTISONE
     Route: 065

REACTIONS (12)
  - Contusion [Unknown]
  - Abdominal pain upper [Unknown]
  - Product quality issue [Unknown]
  - Renal failure [Not Recovered/Not Resolved]
  - Pyrexia [Unknown]
  - Tinnitus [Not Recovered/Not Resolved]
  - Necrosis [Unknown]
  - Injection site haemorrhage [Unknown]
  - Injection site cyst [Not Recovered/Not Resolved]
  - Injection site bruising [Not Recovered/Not Resolved]
  - Nausea [Unknown]
  - Eschar [Not Recovered/Not Resolved]
